FAERS Safety Report 4706202-9 (Version None)
Quarter: 2005Q2

REPORT INFORMATION
  Report Type: 
  Country: None (occurrence: None)
  Receive Date: 20050629
  Receipt Date: 20050615
  Transmission Date: 20051028
  Serious: Yes (Other)
  Sender: FDA-Public Use
  Company Number: 212102

PATIENT
  Age: 51 Year
  Sex: Male
  Weight: 100.7 kg

DRUGS (4)
  1. RITUXIMAB (RITUXIMAB) CONC FOR SOLUTION FOR INFUSION [Suspect]
     Indication: VASCULITIS
     Dosage: 1000 MG, MG, X2; INTRAVENOUS
     Route: 042
     Dates: start: 20041005, end: 20041019
  2. PREVACID [Concomitant]
  3. CELEBREX [Concomitant]
  4. ZYRTEC [Concomitant]

REACTIONS (5)
  - CLOSTRIDIUM COLITIS [None]
  - CONDITION AGGRAVATED [None]
  - DRUG TOXICITY [None]
  - HEPATITIS C [None]
  - HEPATITIS CHOLESTATIC [None]
